FAERS Safety Report 19445188 (Version 1)
Quarter: 2021Q2

REPORT INFORMATION
  Report Type: Spontaneous
  Country: US (occurrence: US)
  Receive Date: 20210621
  Receipt Date: 20210621
  Transmission Date: 20210717
  Serious: No
  Sender: FDA-Public Use
  Company Number: US-SA-2021SA198345

PATIENT
  Age: 50 Year
  Sex: Female

DRUGS (1)
  1. AUBAGIO [Suspect]
     Active Substance: TERIFLUNOMIDE
     Indication: MULTIPLE SCLEROSIS
     Dosage: 14 MG, QD
     Route: 048
     Dates: start: 20210318

REACTIONS (8)
  - Fatigue [Unknown]
  - Hypoaesthesia [Unknown]
  - Incontinence [Unknown]
  - Stress [Unknown]
  - Feeling abnormal [Unknown]
  - Paraesthesia [Unknown]
  - Uhthoff^s phenomenon [Unknown]
  - Dizziness [Unknown]

NARRATIVE: CASE EVENT DATE: 2021
